FAERS Safety Report 6392960-7 (Version None)
Quarter: 2009Q4

REPORT INFORMATION
  Report Type: 
  Country: None (occurrence: None)
  Receive Date: 20091008
  Receipt Date: 20090930
  Transmission Date: 20100525
  Serious: Yes (Hospitalization)
  Sender: FDA-Public Use
  Company Number: US-BIOGENIDEC-2009BI003725

PATIENT
  Age: 49 Year
  Sex: Female
  Weight: 63 kg

DRUGS (1)
  1. TYSABRI [Suspect]
     Indication: MULTIPLE SCLEROSIS
     Route: 042
     Dates: start: 20081121

REACTIONS (10)
  - BURSITIS [None]
  - CALCINOSIS [None]
  - COORDINATION ABNORMAL [None]
  - EXOSTOSIS [None]
  - FATIGUE [None]
  - INSOMNIA [None]
  - MUSCLE RUPTURE [None]
  - MUSCLE STRAIN [None]
  - NEPHROLITHIASIS [None]
  - TENDON DISORDER [None]
